FAERS Safety Report 5526532-0 (Version None)
Quarter: 2007Q4

REPORT INFORMATION
  Report Type: 
  Country: None (occurrence: None)
  Receive Date: 20071121
  Receipt Date: 20071121
  Transmission Date: 20080405
  Serious: Yes (Life-Threatening, Other)
  Sender: FDA-Public Use
  Company Number: None

PATIENT
  Age: 48 Year
  Sex: Female
  Weight: 65.7716 kg

DRUGS (2)
  1. ZOLPIDEM [Suspect]
     Indication: INSOMNIA
     Dosage: ONE TABLET  AT BEDTIME  PO
     Route: 048
     Dates: start: 20070701, end: 20071110
  2. ZOLPIDEM [Suspect]
     Indication: PAIN
     Dosage: ONE TABLET  AT BEDTIME  PO
     Route: 048
     Dates: start: 20070701, end: 20071110

REACTIONS (2)
  - ABNORMAL SLEEP-RELATED EVENT [None]
  - AMNESIA [None]
